FAERS Safety Report 4634904-1 (Version None)
Quarter: 2005Q2

REPORT INFORMATION
  Report Type: 
  Country: None (occurrence: None)
  Receive Date: 20050414
  Receipt Date: 20050405
  Transmission Date: 20051028
  Serious: Yes (Hospitalization)
  Sender: FDA-Public Use
  Company Number: PHEH2005US03995

PATIENT
  Age: 78 Year
  Sex: Female

DRUGS (1)
  1. ZELNORM [Suspect]
     Indication: GASTROOESOPHAGEAL REFLUX DISEASE
     Dosage: 1/2 6 MG BID
     Route: 048
     Dates: start: 20050305, end: 20050311

REACTIONS (4)
  - DIARRHOEA [None]
  - HEADACHE [None]
  - HYPOKALAEMIA [None]
  - HYPONATRAEMIA [None]
